FAERS Safety Report 4308775-7 (Version None)
Quarter: 2004Q1

REPORT INFORMATION
  Report Type: 
  Country: None (occurrence: None)
  Receive Date: 20040227
  Receipt Date: 20040217
  Transmission Date: 20041129
  Serious: Yes (Life-Threatening, Hospitalization, Other)
  Sender: FDA-Public Use
  Company Number: HQWYE834205FEB04

PATIENT
  Age: 76 Year
  Sex: Female
  Weight: 70.37 kg

DRUGS (4)
  1. BLINDED THERAPY FOR CONJUGATED ESTROGENS/MEDROXYPROGESTERONE ACETATE ( [Suspect]
     Indication: DEMENTIA ALZHEIMER'S TYPE
     Dosage: 1 TABLET 1 X PER 1 DAY, ORAL
     Route: 048
     Dates: start: 20030313, end: 20030508
  2. BLINDED THERAPY FOR CONJUGATED ESTROGENS/MEDROXYPROGESTERONE ACETATE ( [Suspect]
     Indication: MENOPAUSE
     Dosage: 1 TABLET 1 X PER 1 DAY, ORAL
     Route: 048
     Dates: start: 20030313, end: 20030508
  3. BLINDED THERAPY FOR CONJUGATED ESTROGENS/MEDROXYPROGESTERONE ACETATE ( [Suspect]
     Indication: PROPHYLAXIS
     Dosage: 1 TABLET 1 X PER 1 DAY, ORAL
     Route: 048
     Dates: start: 20030313, end: 20030508
  4. FIORINAL [Concomitant]

REACTIONS (2)
  - BLINDNESS UNILATERAL [None]
  - INTRACRANIAL ANEURYSM [None]
